FAERS Safety Report 5394151-5 (Version None)
Quarter: 2007Q3

REPORT INFORMATION
  Report Type: 
  Country: None (occurrence: None)
  Receive Date: 20070723
  Receipt Date: 20070711
  Transmission Date: 20080115
  Serious: Yes (Other)
  Sender: FDA-Public Use
  Company Number: BR-ROCHE-507032

PATIENT
  Age: 42 Year
  Sex: Female

DRUGS (1)
  1. ISOTRETINOIN [Suspect]
     Route: 048

REACTIONS (1)
  - LEUKAEMIA [None]
